FAERS Safety Report 9476358 (Version 1)
Quarter: 2013Q3

REPORT INFORMATION
  Report Type: Spontaneous
  Country: US (occurrence: US)
  Receive Date: 20130826
  Receipt Date: 20130826
  Transmission Date: 20140515
  Serious: Yes (Other)
  Sender: FDA-Public Use
  Company Number: US-SANOFI-AVENTIS-2013SA083906

PATIENT
  Age: 82 Year
  Sex: Male

DRUGS (1)
  1. ALLEGRA [Suspect]
     Indication: MULTIPLE ALLERGIES
     Dosage: PRODUCT START DATE- ABOUT TWO YEARS
     Route: 048

REACTIONS (4)
  - Hepatic cirrhosis [Not Recovered/Not Resolved]
  - Ascites [Recovered/Resolved]
  - Pain [Unknown]
  - Blood sodium [Unknown]
